FAERS Safety Report 6524561-1 (Version None)
Quarter: 2009Q4

REPORT INFORMATION
  Report Type: 
  Country: None (occurrence: None)
  Receive Date: 20091224
  Receipt Date: 20091208
  Transmission Date: 20100525
  Serious: Yes (Other)
  Sender: FDA-Public Use
  Company Number: AUR-APL-2009-00151

PATIENT
  Age: 63 Year
  Sex: Male

DRUGS (2)
  1. RIBAVIRIN [Suspect]
     Indication: HEPATITIS C
     Dosage: 400-500MG- BID-  UNK
  2. PEGINTERFERON-ALPHA 2B [Suspect]
     Indication: HEPATITIS C
     Dosage: 50-100MCG-WEEKLY-UNK

REACTIONS (6)
  - ASTHENIA [None]
  - EPISTAXIS [None]
  - OCULAR MYASTHENIA [None]
  - PLATELET COUNT DECREASED [None]
  - PYREXIA [None]
  - RASH PRURITIC [None]
